FAERS Safety Report 5574140-8 (Version None)
Quarter: 2007Q4

REPORT INFORMATION
  Report Type: 
  Country: None (occurrence: None)
  Receive Date: 20071221
  Receipt Date: 20071207
  Transmission Date: 20080405
  Serious: Yes (Death, Life-Threatening)
  Sender: FDA-Public Use
  Company Number: 2007JP001543

PATIENT
  Age: 69 Year
  Sex: Male

DRUGS (5)
  1. PROGRAF [Suspect]
     Indication: RHEUMATOID ARTHRITIS
     Dosage: 1.5 MG, UID/QD, ORAL
     Route: 048
     Dates: start: 20061013, end: 20070322
  2. CYTOTEC [Concomitant]
  3. PREDNISOLONE TAB [Concomitant]
  4. ROCALTROL (CALCITRIOL) CAPSULE [Concomitant]
  5. BENET (RISEDRONATE SODIUM) TABLET [Concomitant]

REACTIONS (1)
  - INTERSTITIAL LUNG DISEASE [None]
